FAERS Safety Report 4442961-0 (Version None)
Quarter: 2004Q3

REPORT INFORMATION
  Report Type: 
  Country: None (occurrence: None)
  Receive Date: 20040907
  Receipt Date: 20040907
  Transmission Date: 20050211
  Serious: Yes (Disabling)
  Sender: FDA-Public Use
  Company Number: None

PATIENT
  Age: 64 Year
  Sex: Male
  Weight: 116.1208 kg

DRUGS (1)
  1. ZEVALIN [Suspect]
     Indication: DIFFUSE LARGE B-CELL LYMPHOMA
     Dosage: 32MCI Y-90ZEVALIN, IV
     Route: 042
     Dates: start: 20040727

REACTIONS (6)
  - DERMATITIS [None]
  - DISCOMFORT [None]
  - INFUSION SITE ERYTHEMA [None]
  - INFUSION SITE REACTION [None]
  - SKIN DESQUAMATION [None]
  - SKIN DISORDER [None]
